FAERS Safety Report 5196178-5 (Version None)
Quarter: 2006Q4

REPORT INFORMATION
  Report Type: 
  Country: None (occurrence: None)
  Receive Date: 20061222
  Receipt Date: 20061215
  Transmission Date: 20070319
  Serious: Yes (Life-Threatening, Hospitalization)
  Sender: FDA-Public Use
  Company Number: 310023M06FRA

PATIENT
  Age: 36 Year
  Sex: Female

DRUGS (2)
  1. GONAL-F [Suspect]
     Indication: INFERTILITY
     Dates: start: 20061027
  2. GONADORELIN INJ [Suspect]
     Indication: INFERTILITY
     Dates: start: 20061004

REACTIONS (5)
  - FIBRIN D DIMER INCREASED [None]
  - HAEMOLYTIC ANAEMIA [None]
  - OVARIAN HYPERSTIMULATION SYNDROME [None]
  - RENAL FAILURE ACUTE [None]
  - THROMBOCYTOPENIA [None]
